FAERS Safety Report 20820084 (Version 2)
Quarter: 2022Q2

REPORT INFORMATION
  Report Type: Spontaneous
  Country: KR (occurrence: KR)
  Receive Date: 20220512
  Receipt Date: 20220516
  Transmission Date: 20220721
  Serious: Yes (Life-Threatening, Hospitalization, Other)
  Sender: FDA-Public Use
  Company Number: KR-NOVARTISPH-NVSC2022KR106874

PATIENT
  Age: 51 Year
  Sex: Female

DRUGS (15)
  1. IMATINIB [Suspect]
     Active Substance: IMATINIB
     Indication: Acute lymphocytic leukaemia
     Dosage: UNK
     Route: 065
  2. DASATINIB [Suspect]
     Active Substance: DASATINIB
     Indication: Acute lymphocytic leukaemia
     Dosage: UNK
     Route: 065
     Dates: start: 20220309, end: 20220322
  3. INOTUZUMAB OZOGAMICIN [Suspect]
     Active Substance: INOTUZUMAB OZOGAMICIN
     Indication: Acute lymphocytic leukaemia
     Dosage: 1.14 MG, QD
     Route: 042
     Dates: start: 20220421, end: 20220421
  4. HYDROCORTISONE SODIUM SUCCINATE [Concomitant]
     Active Substance: HYDROCORTISONE SODIUM SUCCINATE
     Indication: Prophylaxis
     Dosage: UNK
     Route: 042
     Dates: start: 20220421, end: 20220421
  5. HEPARIN [Concomitant]
     Active Substance: HEPARIN SODIUM
     Indication: Flushing
     Dosage: UNK
     Route: 065
     Dates: start: 20220414, end: 20220414
  6. HYDRINE [Concomitant]
     Indication: Acute lymphocytic leukaemia
     Dosage: UNK
     Route: 048
     Dates: start: 20220414, end: 20220420
  7. LIDOCAINE HYDROCHLORIDE [Concomitant]
     Active Substance: LIDOCAINE HYDROCHLORIDE
     Indication: Prophylaxis
     Dosage: UNK
     Route: 058
     Dates: start: 20220421, end: 20220421
  8. PHENIRAMINE [Concomitant]
     Active Substance: PHENIRAMINE
     Indication: Prophylaxis
     Dosage: UNK
     Route: 042
     Dates: start: 20220421, end: 20220421
  9. SANCUSO [Concomitant]
     Active Substance: GRANISETRON
     Indication: Prophylaxis
     Dosage: UNK
     Route: 065
     Dates: start: 20220421, end: 20220421
  10. CAB [Concomitant]
     Indication: Prophylaxis
     Dosage: UNK
     Route: 048
     Dates: start: 20220414
  11. SULFAMETHOXAZOLE\TRIMETHOPRIM [Concomitant]
     Active Substance: SULFAMETHOXAZOLE\TRIMETHOPRIM
     Indication: Prophylaxis
     Dosage: UNK
     Route: 048
     Dates: start: 20220414
  12. SODIUM BICARBONATE [Concomitant]
     Active Substance: SODIUM BICARBONATE
     Indication: Prophylaxis
     Dosage: UNK
     Route: 042
     Dates: start: 20220421, end: 20220421
  13. TYLENOL [Concomitant]
     Active Substance: ACETAMINOPHEN
     Indication: Prophylaxis
     Dosage: UNK (8 HOUR)
     Route: 048
     Dates: start: 20220421, end: 20220427
  14. URSODIOL [Concomitant]
     Active Substance: URSODIOL
     Indication: Liver function test increased
     Dosage: UNK
     Route: 048
     Dates: start: 20220414
  15. ALLOPURINOL [Concomitant]
     Active Substance: ALLOPURINOL
     Indication: Prophylaxis
     Dosage: UNK
     Route: 048
     Dates: start: 20220421, end: 20220427

REACTIONS (24)
  - Septic shock [Recovering/Resolving]
  - Escherichia test positive [Unknown]
  - Hypotension [Unknown]
  - Respiratory rate increased [Unknown]
  - Heart rate increased [Unknown]
  - Pyrexia [Unknown]
  - Syncope [Recovering/Resolving]
  - Acute graft versus host disease [Recovered/Resolved]
  - Pneumonia [Not Recovered/Not Resolved]
  - COVID-19 [Not Recovered/Not Resolved]
  - Asthenia [Unknown]
  - Liver function test increased [Not Recovered/Not Resolved]
  - Oedema [Recovered/Resolved]
  - Diarrhoea [Unknown]
  - Dizziness [Unknown]
  - Stomatitis [Not Recovered/Not Resolved]
  - Paraesthesia [Not Recovered/Not Resolved]
  - Pain in extremity [Not Recovered/Not Resolved]
  - White blood cell count decreased [Unknown]
  - C-reactive protein increased [Unknown]
  - Haemoglobin decreased [Unknown]
  - Neutrophil count decreased [Unknown]
  - Platelet count decreased [Unknown]
  - Procalcitonin increased [Unknown]

NARRATIVE: CASE EVENT DATE: 20210309
